FAERS Safety Report 21725274 (Version 1)
Quarter: 2022Q4

REPORT INFORMATION
  Report Type: Other
  Country: FR (occurrence: None)
  Receive Date: 20221214
  Receipt Date: 20221214
  Transmission Date: 20230113
  Serious: Yes (Death)
  Sender: FDA-Public Use
  Company Number: FR-ROCHE-3241486

PATIENT

DRUGS (4)
  1. BEVACIZUMAB [Suspect]
     Active Substance: BEVACIZUMAB
     Indication: Glioblastoma
     Dosage: UNTIL DISEASE PROGRESSION
     Route: 042
  2. FOTEMUSTINE [Concomitant]
     Active Substance: FOTEMUSTINE
     Indication: Glioblastoma
     Dosage: INDUCTION PHASE OF 80 MG/M2 EVERY TWO WEEKS FOR SIX WEEKS, FOLLOWED BY A MAINTENANCE PHASE OF 80 MG/
     Route: 042
  3. TEMOZOLOMIDE [Concomitant]
     Active Substance: TEMOZOLOMIDE
     Indication: Glioblastoma
     Dosage: FROM THE FIRST DAY OF RADIOTHERAPY, SEVEN DAYS PER WEEK
     Route: 065
  4. TEMOZOLOMIDE [Concomitant]
     Active Substance: TEMOZOLOMIDE
     Dosage: FIVE DAYS EVERY 4 WEEKS
     Route: 065

REACTIONS (1)
  - Muscle haemorrhage [Fatal]
